FAERS Safety Report 8134362-9 (Version None)
Quarter: 2012Q1

REPORT INFORMATION
  Report Type: 
  Country: None (occurrence: None)
  Receive Date: 20120209
  Receipt Date: 20120131
  Transmission Date: 20120608
  Serious: Yes (Hospitalization)
  Sender: FDA-Public Use
  Company Number: 2012MA001649

PATIENT
  Sex: Male

DRUGS (1)
  1. RAMIPRIL [Suspect]
     Dosage: 2.5MG;

REACTIONS (1)
  - EXTRASYSTOLES [None]
